FAERS Safety Report 9332149 (Version 1)
Quarter: 2013Q2

REPORT INFORMATION
  Report Type: Spontaneous
  Country: TW (occurrence: TW)
  Receive Date: 20130606
  Receipt Date: 20130606
  Transmission Date: 20140414
  Serious: Yes (Other)
  Sender: FDA-Public Use
  Company Number: TW-ROCHE-1232877

PATIENT
  Age: 49 Year
  Sex: Female
  Weight: 60.6 kg

DRUGS (2)
  1. PEGASYS [Suspect]
     Indication: HEPATITIS C
     Route: 058
     Dates: start: 20130312, end: 20130604
  2. ROBATROL [Suspect]
     Indication: HEPATITIS C
     Route: 048
     Dates: start: 20130312, end: 20130604

REACTIONS (1)
  - Vascular rupture [Not Recovered/Not Resolved]
